FAERS Safety Report 5418677-0 (Version None)
Quarter: 2007Q3

REPORT INFORMATION
  Report Type: 
  Country: None (occurrence: None)
  Receive Date: 20070817
  Receipt Date: 20070809
  Transmission Date: 20080115
  Serious: Yes (Hospitalization, Other)
  Sender: FDA-Public Use
  Company Number: DE-PFIZER INC-2007065836

PATIENT
  Sex: Female
  Weight: 47 kg

DRUGS (2)
  1. ZOLOFT [Suspect]
     Indication: MENTAL DISORDER
     Route: 048
  2. TAMBOCOR [Concomitant]

REACTIONS (6)
  - ABDOMINAL SYMPTOM [None]
  - ELECTROLYTE IMBALANCE [None]
  - GENERAL PHYSICAL HEALTH DETERIORATION [None]
  - HYPONATRAEMIA [None]
  - NAUSEA [None]
  - TACHYARRHYTHMIA [None]
